FAERS Safety Report 8186719-8 (Version None)
Quarter: 2012Q1

REPORT INFORMATION
  Report Type: 
  Country: None (occurrence: None)
  Receive Date: 20120306
  Receipt Date: 20120227
  Transmission Date: 20120608
  Serious: Yes (Hospitalization, Other)
  Sender: FDA-Public Use
  Company Number: US-ASTELLAS-2011US005272

PATIENT

DRUGS (15)
  1. PRILOSEC [Concomitant]
     Indication: PRODUCT USED FOR UNKNOWN INDICATION
     Dosage: 20 MG, UNKNOWN/D
     Route: 048
  2. PROGRAF [Suspect]
     Indication: LIVER TRANSPLANT
     Dosage: 1 MG, BID
     Route: 048
     Dates: start: 20030705
  3. CELEXA [Concomitant]
     Indication: PRODUCT USED FOR UNKNOWN INDICATION
     Dosage: 40 MG, UID/QD
     Route: 048
  4. MYCOPHENOLATE MOFETIL (CELLCEPT) [Suspect]
     Indication: PRODUCT USED FOR UNKNOWN INDICATION
     Dosage: 1000 MG, BID
     Route: 065
  5. ASPIRIN [Concomitant]
     Indication: PRODUCT USED FOR UNKNOWN INDICATION
     Dosage: UNK
     Route: 065
  6. PROPRANOLOL [Concomitant]
     Indication: PRODUCT USED FOR UNKNOWN INDICATION
     Dosage: 40 MG, UID/QD
     Route: 048
  7. PRINIVIL [Concomitant]
     Indication: PRODUCT USED FOR UNKNOWN INDICATION
     Dosage: 5 MG, UID/QD
     Route: 048
  8. PREVACID [Concomitant]
     Indication: PRODUCT USED FOR UNKNOWN INDICATION
     Dosage: 30 MG, UID/QD
     Route: 048
  9. BACTRIM DS [Concomitant]
     Indication: PRODUCT USED FOR UNKNOWN INDICATION
     Dosage: 1 DF, 3XWEEKLY
     Route: 065
  10. SPIRONOLACTONE [Concomitant]
     Indication: PRODUCT USED FOR UNKNOWN INDICATION
     Dosage: 50 MG, UID/QD
     Route: 048
  11. ULTRAM [Concomitant]
     Indication: PRODUCT USED FOR UNKNOWN INDICATION
     Dosage: 100 MG, Q6 HOURS
     Route: 065
  12. ALLOPURINOL [Concomitant]
     Indication: PRODUCT USED FOR UNKNOWN INDICATION
     Dosage: 100 MG, UID/QD
     Route: 065
  13. COLCHICINE [Concomitant]
     Indication: PRODUCT USED FOR UNKNOWN INDICATION
     Dosage: 0.6 MG, UNKNOWN/D
     Route: 048
  14. ZYPREXA [Concomitant]
     Indication: PRODUCT USED FOR UNKNOWN INDICATION
     Dosage: 15 MG, UID/QD
     Route: 048
  15. TRAZODONE HCL [Concomitant]
     Indication: PRODUCT USED FOR UNKNOWN INDICATION
     Dosage: 100 MG, UID/QD
     Route: 048

REACTIONS (65)
  - CEREBROVASCULAR ACCIDENT [None]
  - PLEURAL EFFUSION [None]
  - PNEUMOTHORAX [None]
  - FRACTURE [None]
  - RENAL FAILURE CHRONIC [None]
  - POST-TRAUMATIC STRESS DISORDER [None]
  - DIABETIC RETINOPATHY [None]
  - HEPATIC FIBROSIS [None]
  - ARTHRITIS [None]
  - TENDON DISORDER [None]
  - MALAISE [None]
  - HEPATITIS B [None]
  - PORTAL HYPERTENSION [None]
  - DIABETIC NEUROPATHY [None]
  - GASTROOESOPHAGEAL REFLUX DISEASE [None]
  - HYPERTENSION [None]
  - HEPATITIS A [None]
  - TEMPERATURE INTOLERANCE [None]
  - LUNG OPERATION [None]
  - TREATMENT NONCOMPLIANCE [None]
  - HYPOAESTHESIA [None]
  - PULMONARY OEDEMA [None]
  - PAIN IN EXTREMITY [None]
  - INSOMNIA [None]
  - CONFUSIONAL STATE [None]
  - PLEURAL ADHESION [None]
  - OSTEOMYELITIS [None]
  - DEAFNESS [None]
  - BENIGN PROSTATIC HYPERPLASIA [None]
  - SPLENOMEGALY [None]
  - FALL [None]
  - HYPERLIPIDAEMIA [None]
  - ABDOMINAL DISCOMFORT [None]
  - URINARY RETENTION [None]
  - INJURY [None]
  - ROTATOR CUFF SYNDROME [None]
  - DIABETIC NEPHROPATHY [None]
  - POLLAKIURIA [None]
  - OSTEONECROSIS [None]
  - RETINAL VEIN OCCLUSION [None]
  - ROAD TRAFFIC ACCIDENT [None]
  - DIABETES MELLITUS [None]
  - BACK INJURY [None]
  - ANKLE FRACTURE [None]
  - PROTEINURIA [None]
  - BACK PAIN [None]
  - BLOOD PRESSURE INADEQUATELY CONTROLLED [None]
  - INADEQUATE ANALGESIA [None]
  - URINARY HESITATION [None]
  - HEPATIC FUNCTION ABNORMAL [None]
  - BLOOD TRIGLYCERIDES INCREASED [None]
  - INFECTION SUSCEPTIBILITY INCREASED [None]
  - MANIA [None]
  - BIPOLAR DISORDER [None]
  - NAUSEA [None]
  - MICROALBUMINURIA [None]
  - PNEUMONIA [None]
  - VARICELLA [None]
  - INCORRECT DOSE ADMINISTERED [None]
  - DRUG INEFFECTIVE [None]
  - SEXUAL DYSFUNCTION [None]
  - HEAD INJURY [None]
  - MULTIPLE FRACTURES [None]
  - URINE FLOW DECREASED [None]
  - BLOOD CHOLESTEROL INCREASED [None]
